FAERS Safety Report 19231218 (Version 1)
Quarter: 2021Q2

REPORT INFORMATION
  Report Type: Spontaneous
  Country: FR (occurrence: FR)
  Receive Date: 20210507
  Receipt Date: 20210507
  Transmission Date: 20210717
  Serious: Yes (Hospitalization)
  Sender: FDA-Public Use
  Company Number: FR-ORGANON-O2105FRA000302

PATIENT
  Age: 51 Year
  Sex: Male

DRUGS (2)
  1. BETAMETHASONE. [Suspect]
     Active Substance: BETAMETHASONE
     Dosage: X2/J, FREQUENCY NOT REPORTED
     Route: 048
     Dates: start: 20210407, end: 20210414
  2. PYOSTACINE [Suspect]
     Active Substance: PRISTINAMYCIN
     Indication: DERMATITIS ATOPIC
     Dosage: 1X/J; FREQUENCY NOT REPORTED, FORMULATION REPORTED AS 1 FP
     Dates: start: 20210407, end: 20210414

REACTIONS (1)
  - Pancreatitis acute [Recovered/Resolved]

NARRATIVE: CASE EVENT DATE: 20210414
